APPROVED DRUG PRODUCT: OXYCODONE HYDROCHLORIDE AND IBUPROFEN
Active Ingredient: IBUPROFEN; OXYCODONE HYDROCHLORIDE
Strength: 400MG;5MG
Dosage Form/Route: TABLET;ORAL
Application: A078769 | Product #001
Applicant: ACTAVIS ELIZABETH LLC
Approved: Jan 4, 2008 | RLD: No | RS: No | Type: DISCN